FAERS Safety Report 8776852 (Version 1)
Quarter: 2012Q4

REPORT INFORMATION
  Report Type: 
  Country: NL (occurrence: NL)
  Receive Date: 20120911
  Receipt Date: 20120911
  Transmission Date: 20130627
  Serious: Yes (Other)
  Sender: FDA-Public Use
  Company Number: NL-PFIZER INC-2012222073

PATIENT
  Age: 49 Year
  Sex: Male
  Weight: 100 kg

DRUGS (1)
  1. CELEBREX [Suspect]
     Indication: ADENOMATOUS POLYPOSIS COLI
     Dosage: 200 mg, 2x/day
     Dates: start: 20120701, end: 20120906

REACTIONS (4)
  - Disturbance in attention [Not Recovered/Not Resolved]
  - Finger amputation [Unknown]
  - Balance disorder [Unknown]
  - Bradyphrenia [Unknown]
